FAERS Safety Report 15395953 (Version 1)
Quarter: 2018Q3

REPORT INFORMATION
  Report Type: Spontaneous
  Country: US (occurrence: US)
  Receive Date: 20180918
  Receipt Date: 20180918
  Transmission Date: 20181010
  Serious: No
  Sender: FDA-Public Use
  Company Number: US-GLAXOSMITHKLINE-US2018GSK164962

PATIENT

DRUGS (1)
  1. NICOTINE POLACRILEX [Suspect]
     Active Substance: NICOTINE
     Indication: SMOKING CESSATION THERAPY
     Dosage: UNK, 1 LOZENGE EVERY 2 HR

REACTIONS (7)
  - Ill-defined disorder [Recovered/Resolved]
  - Adverse reaction [Recovered/Resolved]
  - Nausea [Recovered/Resolved]
  - Nicotine dependence [Recovered/Resolved]
  - Dizziness [Recovered/Resolved]
  - Hiccups [Recovered/Resolved]
  - Dyspnoea [Recovered/Resolved]
